FAERS Safety Report 11690002 (Version 1)
Quarter: 2015Q4

REPORT INFORMATION
  Report Type: Spontaneous
  Country: US (occurrence: None)
  Receive Date: 20151030
  Receipt Date: 20151030
  Transmission Date: 20160304
  Serious: Yes (Hospitalization)
  Sender: FDA-Public Use
  Company Number: None

PATIENT
  Age: 63 Year
  Sex: Male
  Weight: 102.78 kg

DRUGS (4)
  1. CISPLATIN. [Suspect]
     Active Substance: CISPLATIN
     Dates: end: 20151007
  2. DOXORUBICIN HYDROCHLORIDE. [Suspect]
     Active Substance: DOXORUBICIN HYDROCHLORIDE
     Dates: end: 20151007
  3. METHOTREXATE [Suspect]
     Active Substance: METHOTREXATE
     Dates: end: 20151007
  4. VINBLASTINE SULFATE. [Suspect]
     Active Substance: VINBLASTINE SULFATE
     Dates: end: 20151007

REACTIONS (12)
  - Asthenia [None]
  - Back pain [None]
  - Blood culture positive [None]
  - Wheezing [None]
  - Sepsis [None]
  - Dyspnoea [None]
  - Culture urine positive [None]
  - Malaise [None]
  - Staphylococcal infection [None]
  - Pyrexia [None]
  - Febrile neutropenia [None]
  - Extradural abscess [None]

NARRATIVE: CASE EVENT DATE: 20151013
